FAERS Safety Report 8084956-4 (Version None)
Quarter: 2012Q1

REPORT INFORMATION
  Report Type: 
  Country: None (occurrence: None)
  Receive Date: 20120128
  Receipt Date: 20110329
  Transmission Date: 20120608
  Serious: No
  Sender: FDA-Public Use
  Company Number: US-ABBOTT-11P-163-0715533-00

PATIENT
  Sex: Female
  Weight: 77.18 kg

DRUGS (5)
  1. METHOTREXATE [Concomitant]
     Indication: ANKYLOSING SPONDYLITIS
  2. PREDNISONE TAB [Concomitant]
     Indication: ANKYLOSING SPONDYLITIS
  3. HUMIRA [Suspect]
     Indication: ANKYLOSING SPONDYLITIS
  4. RELAFEN [Concomitant]
     Indication: RHEUMATOID ARTHRITIS
  5. AZULFIDINE [Concomitant]
     Indication: ANKYLOSING SPONDYLITIS

REACTIONS (9)
  - SINUSITIS [None]
  - KIDNEY INFECTION [None]
  - ABDOMINAL HERNIA [None]
  - INJECTION SITE ERYTHEMA [None]
  - SWELLING [None]
  - INJECTION SITE WARMTH [None]
  - DRUG DOSE OMISSION [None]
  - MASS [None]
  - ABDOMINAL DISCOMFORT [None]
